FAERS Safety Report 23475798 (Version 1)
Quarter: 2024Q1

REPORT INFORMATION
  Report Type: Report from Study
  Country: US (occurrence: US)
  Receive Date: 20240204
  Receipt Date: 20240204
  Transmission Date: 20240410
  Serious: No
  Sender: FDA-Public Use
  Company Number: US-EXELIXIS-CABO-23060957

PATIENT
  Age: 62 Year
  Sex: Male

DRUGS (4)
  1. CABOMETYX [Suspect]
     Active Substance: CABOZANTINIB S-MALATE
     Indication: Renal cancer
     Dosage: 40 MG, QD
     Route: 048
     Dates: start: 20220810
  2. CABOMETYX [Suspect]
     Active Substance: CABOZANTINIB S-MALATE
     Dosage: 40 MG, QOD
     Route: 048
     Dates: start: 202208
  3. CABOMETYX [Suspect]
     Active Substance: CABOZANTINIB S-MALATE
     Dosage: 40 MG EVERY 72 HOURS
     Route: 048
  4. CABOMETYX [Suspect]
     Active Substance: CABOZANTINIB S-MALATE
     Dosage: 20 MG EVERY 72 HOURS
     Route: 048

REACTIONS (5)
  - Blister [Not Recovered/Not Resolved]
  - Blood pressure increased [Unknown]
  - Hepatic enzyme increased [Unknown]
  - Inappropriate schedule of product administration [Unknown]
  - Product prescribing issue [Unknown]

NARRATIVE: CASE EVENT DATE: 20220801
